FAERS Safety Report 10710668 (Version 3)
Quarter: 2015Q1

REPORT INFORMATION
  Report Type: Spontaneous
  Country: US (occurrence: US)
  Receive Date: 20150114
  Receipt Date: 20150330
  Transmission Date: 20150721
  Serious: Yes (Congenital Anomaly, Other)
  Sender: FDA-Public Use
  Company Number: US-APOTEX-2015AP005218

PATIENT
  Age: 0 Day
  Sex: Male
  Weight: 4 kg

DRUGS (4)
  1. PAXIL [Suspect]
     Active Substance: PAROXETINE HYDROCHLORIDE
     Dosage: 30 MG, DAILY
     Route: 064
  2. PAXIL [Suspect]
     Active Substance: PAROXETINE HYDROCHLORIDE
     Dosage: 25 MG, DAILY
     Route: 064
  3. PAXIL [Suspect]
     Active Substance: PAROXETINE HYDROCHLORIDE
     Indication: DEPRESSION
     Dosage: 10 MG DAILY
     Route: 064
  4. PAXIL [Suspect]
     Active Substance: PAROXETINE HYDROCHLORIDE
     Indication: ANXIETY
     Dosage: 20 MG DAILY
     Route: 064

REACTIONS (15)
  - Eustachian tube dysfunction [Unknown]
  - Speech disorder developmental [Unknown]
  - Otitis media [Unknown]
  - Foetal exposure during pregnancy [Unknown]
  - Sinus disorder [Unknown]
  - Pneumonia [Unknown]
  - Oesophagitis [Unknown]
  - Cleft lip and palate [Unknown]
  - Speech disorder [Unknown]
  - Velopharyngeal incompetence [Unknown]
  - Gingivitis [Unknown]
  - Developmental delay [Unknown]
  - Attention deficit/hyperactivity disorder [Unknown]
  - Nose deformity [Unknown]
  - Respiratory disorder [Unknown]

NARRATIVE: CASE EVENT DATE: 20020723
